FAERS Safety Report 24288772 (Version 1)
Quarter: 2024Q3

REPORT INFORMATION
  Report Type: Report from Study
  Country: US (occurrence: US)
  Receive Date: 20240906
  Receipt Date: 20240906
  Transmission Date: 20241017
  Serious: Yes (Death, Other)
  Sender: RECORDATI
  Company Number: US-ORPHANEU-2024006643

PATIENT

DRUGS (11)
  1. SILTUXIMAB [Suspect]
     Active Substance: SILTUXIMAB
     Indication: Cytokine release syndrome
     Dosage: UNK (1 DOSE)
  2. SILTUXIMAB [Suspect]
     Active Substance: SILTUXIMAB
     Indication: Immune effector cell-associated neurotoxicity syndrome
  3. SILTUXIMAB [Suspect]
     Active Substance: SILTUXIMAB
     Indication: Off label use
  4. LAPINE T-LYMPHOCYTE IMMUNE GLOBULIN [Suspect]
     Active Substance: LAPINE T-LYMPHOCYTE IMMUNE GLOBULIN
     Indication: Cytokine release syndrome
     Dosage: UNK
  5. LAPINE T-LYMPHOCYTE IMMUNE GLOBULIN [Suspect]
     Active Substance: LAPINE T-LYMPHOCYTE IMMUNE GLOBULIN
     Indication: Immune effector cell-associated neurotoxicity syndrome
  6. ANAKINRA [Suspect]
     Active Substance: ANAKINRA
     Indication: Cytokine release syndrome
     Dosage: UNK
  7. ANAKINRA [Suspect]
     Active Substance: ANAKINRA
     Indication: Immune effector cell-associated neurotoxicity syndrome
  8. TOCILIZUMAB [Suspect]
     Active Substance: TOCILIZUMAB
     Indication: Cytokine release syndrome
     Dosage: 2 DOSE
  9. TOCILIZUMAB [Suspect]
     Active Substance: TOCILIZUMAB
     Indication: Immune effector cell-associated neurotoxicity syndrome
  10. ETOPOSIDE [Suspect]
     Active Substance: ETOPOSIDE
     Indication: Cytokine release syndrome
     Dosage: 2 DOSE
  11. ETOPOSIDE [Suspect]
     Active Substance: ETOPOSIDE
     Indication: Immune effector cell-associated neurotoxicity syndrome

REACTIONS (5)
  - Infection [Fatal]
  - Disease progression [Fatal]
  - Enterococcal infection [Unknown]
  - Staphylococcal infection [Unknown]
  - Off label use [Recovered/Resolved]
